FAERS Safety Report 6152112-2 (Version None)
Quarter: 2009Q2

REPORT INFORMATION
  Report Type: 
  Country: None (occurrence: None)
  Receive Date: 20090408
  Receipt Date: 20090324
  Transmission Date: 20091009
  Serious: Yes (Hospitalization, Other)
  Sender: FDA-Public Use
  Company Number: 2007AL002603

PATIENT
  Age: 42 Year
  Sex: Male
  Weight: 79.6 kg

DRUGS (18)
  1. DIAZEPAM [Suspect]
     Indication: PANIC ATTACK
     Dosage: 5 MG
     Dates: start: 20011019
  2. TEMAZEPAM [Suspect]
     Indication: DRUG USE FOR UNKNOWN INDICATION
     Dosage: 10 MG;HS
     Dates: start: 20020704
  3. SILDENAFIL CITRATE [Concomitant]
  4. SIMVASTATIN [Concomitant]
  5. ARIPIPRAZOLE [Concomitant]
  6. MIRTAZAPINE [Concomitant]
  7. CO-DYDRAMOL [Concomitant]
  8. QVAR 40 [Concomitant]
  9. LEVEMIR [Concomitant]
  10. SALBUTAMOL [Concomitant]
  11. ACETAMINOPHEN W/ CODEINE [Concomitant]
  12. FLUPENTIXOL [Concomitant]
  13. TRIPTAFEN [Concomitant]
  14. INSULIN [Concomitant]
  15. RISPERDAL [Concomitant]
  16. FLUANXOL [Concomitant]
  17. INSULIN DETEMIR [Concomitant]
  18. HUMAN INSULIN [Concomitant]

REACTIONS (13)
  - DEPRESSION [None]
  - DIABETIC COMA [None]
  - FALL [None]
  - FEAR [None]
  - HALLUCINATION, AUDITORY [None]
  - IRRITABILITY [None]
  - MALAISE [None]
  - MOOD SWINGS [None]
  - PANIC ATTACK [None]
  - PARANOIA [None]
  - POOR QUALITY SLEEP [None]
  - SUSPICIOUSNESS [None]
  - TYPE 1 DIABETES MELLITUS [None]
